FAERS Safety Report 5225959-4 (Version None)
Quarter: 2007Q1

REPORT INFORMATION
  Report Type: 
  Country: None (occurrence: None)
  Receive Date: 20070201
  Receipt Date: 20070124
  Transmission Date: 20070707
  Serious: Yes (Hospitalization)
  Sender: FDA-Public Use
  Company Number: GB-AVENTIS-200710713GDDC

PATIENT
  Age: 75 Year
  Sex: Male
  Weight: 84 kg

DRUGS (3)
  1. DOCETAXEL [Suspect]
     Indication: PROSTATE CANCER
     Dosage: DOSE: UNK
     Route: 042
     Dates: start: 20061212, end: 20070102
  2. PREDNISOLONE [Suspect]
     Indication: PROSTATE CANCER
     Dates: start: 20061212, end: 20070102
  3. ZOLEDRONIC ACID [Suspect]
     Indication: PROSTATE CANCER
     Dates: start: 20061212, end: 20070102

REACTIONS (4)
  - DIARRHOEA [None]
  - FEBRILE NEUTROPENIA [None]
  - URINARY RETENTION [None]
  - VOMITING [None]
